FAERS Safety Report 10756659 (Version 1)
Quarter: 2015Q1

REPORT INFORMATION
  Report Type: Report from Study
  Country: BR (occurrence: BR)
  Receive Date: 20150202
  Receipt Date: 20150202
  Transmission Date: 20150721
  Serious: Yes (Other)
  Sender: FDA-Public Use
  Company Number: PHHY2015BR012082

PATIENT
  Sex: Female
  Weight: 59 kg

DRUGS (4)
  1. ACLASTA [Suspect]
     Active Substance: ZOLEDRONIC ACID
     Indication: OSTEOPOROSIS
     Dosage: ONCE/YEAR
     Route: 065
     Dates: start: 20140516
  2. OSCAL [Concomitant]
     Active Substance: CALCIUM CARBONATE
     Indication: OSTEOPOROSIS
     Dosage: 1 DF, QD
     Route: 065
     Dates: start: 2013
  3. EUTHYROX [Concomitant]
     Active Substance: LEVOTHYROXINE SODIUM
     Indication: HYPERTHYROIDISM
     Dosage: 1 DF, QD
     Route: 065
  4. ADDERA D3 [Concomitant]
     Active Substance: CHOLECALCIFEROL
     Indication: OSTEOPOROSIS
     Dosage: 1 DF, QW
     Route: 065
     Dates: start: 2013

REACTIONS (1)
  - Urinary tract infection [Recovered/Resolved]
